FAERS Safety Report 5760248-0 (Version None)
Quarter: 2008Q2

REPORT INFORMATION
  Report Type: 
  Country: None (occurrence: None)
  Receive Date: 20080602
  Receipt Date: 20080521
  Transmission Date: 20081010
  Serious: Yes (Other)
  Sender: FDA-Public Use
  Company Number: 2008013400

PATIENT
  Age: 72 Year
  Sex: Female
  Weight: 70.7611 kg

DRUGS (1)
  1. VISINE-A [Suspect]
     Indication: HYPERSENSITIVITY
     Dosage: 1 DROP PER EYE ONCE; OPHTHALMIC
     Dates: start: 20080518, end: 20080518

REACTIONS (3)
  - APPLICATION SITE BURN [None]
  - DRY SKIN [None]
  - EYE SWELLING [None]
